FAERS Safety Report 7824845-0 (Version None)
Quarter: 2011Q4

REPORT INFORMATION
  Report Type: 
  Country: None (occurrence: None)
  Receive Date: 20111019
  Receipt Date: 20110214
  Transmission Date: 20120403
  Serious: No
  Sender: FDA-Public Use
  Company Number: US-BRISTOL-MYERS SQUIBB COMPANY-15547847

PATIENT
  Age: 80 Year
  Sex: Female

DRUGS (3)
  1. ZYRTEC [Concomitant]
  2. AVALIDE [Suspect]
     Dosage: DOSE INCREASED TO 300MG ON NOV10
     Dates: start: 20100101
  3. NEXIUM [Concomitant]

REACTIONS (1)
  - ALOPECIA [None]
